FAERS Safety Report 25009124 (Version 1)
Quarter: 2025Q1

REPORT INFORMATION
  Report Type: Spontaneous
  Country: US (occurrence: US)
  Receive Date: 20250225
  Receipt Date: 20250225
  Transmission Date: 20250409
  Serious: Yes (Other)
  Sender: PFIZER
  Company Number: US-PFIZER INC-202500041532

PATIENT
  Age: 81 Year
  Sex: Male

DRUGS (1)
  1. XELJANZ XR [Suspect]
     Active Substance: TOFACITINIB CITRATE
     Dosage: XR 11MG TABLET (30^S) 1 TABLET DAILY

REACTIONS (3)
  - Foot operation [Recovering/Resolving]
  - Clavicle fracture [Recovering/Resolving]
  - Foot fracture [Recovering/Resolving]

NARRATIVE: CASE EVENT DATE: 20241101
